FAERS Safety Report 17837915 (Version 2)
Quarter: 2020Q3

REPORT INFORMATION
  Report Type: Spontaneous
  Country: US (occurrence: US)
  Receive Date: 20200528
  Receipt Date: 20200715
  Transmission Date: 20201103
  Serious: Yes (Other)
  Sender: FDA-Public Use
  Company Number: NVSC2020US141167

PATIENT
  Age: 87 Year
  Sex: Female

DRUGS (2)
  1. BEOVU [Suspect]
     Active Substance: BROLUCIZUMAB-DBLL
     Indication: NEOVASCULAR AGE-RELATED MACULAR DEGENERATION
     Dosage: 6 MG,(RIGHT EYE) QMO
     Route: 047
     Dates: start: 20200207
  2. BEOVU [Suspect]
     Active Substance: BROLUCIZUMAB-DBLL
     Dosage: 6 MG,(LEFT EYE) QMO
     Route: 047
     Dates: start: 20200208

REACTIONS (3)
  - Vitreous floaters [Unknown]
  - Anterior chamber flare [Unknown]
  - Uveitis [Unknown]

NARRATIVE: CASE EVENT DATE: 20200505
